FAERS Safety Report 10571849 (Version 1)
Quarter: 2014Q4

REPORT INFORMATION
  Report Type: Spontaneous
  Country: IT (occurrence: IT)
  Receive Date: 20141107
  Receipt Date: 20141107
  Transmission Date: 20150529
  Serious: Yes (Hospitalization)
  Sender: FDA-Public Use
  Company Number: IT-SA-2014SA149703

PATIENT
  Age: 75 Year
  Sex: Female

DRUGS (9)
  1. APROVEL [Suspect]
     Active Substance: IRBESARTAN
     Indication: HYPERTENSION
     Route: 048
     Dates: start: 20120101, end: 20140425
  2. LANOXIN [Concomitant]
     Active Substance: DIGOXIN
     Dosage: STRENGTH: 0.125 MG
  3. METFORMIN [Concomitant]
     Active Substance: METFORMIN HYDROCHLORIDE
  4. ISOPTIN [Concomitant]
     Active Substance: VERAPAMIL HYDROCHLORIDE
     Dosage: STRENGTH: 80 MG
  5. ONBREZ BREEZHALER [Concomitant]
     Active Substance: INDACATEROL
  6. LASIX [Concomitant]
     Active Substance: FUROSEMIDE
     Dosage: STRENGTH: 25 MG
  7. GLYCOPYRRONIUM BROMIDE [Concomitant]
     Active Substance: GLYCOPYRRONIUM
  8. LANSOPRAZOLE. [Concomitant]
     Active Substance: LANSOPRAZOLE
  9. CLEXANE [Concomitant]
     Active Substance: ENOXAPARIN SODIUM
     Dosage: 4000 IU AXA/0.4 ML SOLUTION FOR INJECTION,6 PRE-FILLED SYRINGE BY 0.4 ML WITH SECURITY SYSTEM

REACTIONS (3)
  - Hypotension [Recovering/Resolving]
  - Injury [Recovering/Resolving]
  - Presyncope [Recovering/Resolving]

NARRATIVE: CASE EVENT DATE: 20140425
